FAERS Safety Report 24800748 (Version 1)
Quarter: 2025Q1

REPORT INFORMATION
  Report Type: Spontaneous
  Country: CN (occurrence: CN)
  Receive Date: 20250102
  Receipt Date: 20250102
  Transmission Date: 20250409
  Serious: Yes (Other)
  Sender: MERCK
  Company Number: CN-009507513-2501CHN000077

PATIENT
  Age: 36 Year
  Sex: Female
  Weight: 74 kg

DRUGS (3)
  1. INVANZ [Suspect]
     Active Substance: ERTAPENEM SODIUM
     Indication: Anti-infective therapy
     Dosage: 1 G, QD
     Route: 041
     Dates: start: 20241204, end: 20241213
  2. INVANZ [Suspect]
     Active Substance: ERTAPENEM SODIUM
     Indication: Ascites
  3. INVANZ [Suspect]
     Active Substance: ERTAPENEM SODIUM
     Indication: Hepatic function abnormal

REACTIONS (8)
  - Anal injury [Not Recovered/Not Resolved]
  - Superinfection [Unknown]
  - Dysbiosis [Unknown]
  - Diarrhoea [Recovering/Resolving]
  - Abdominal distension [Unknown]
  - Oedema peripheral [Unknown]
  - Product use in unapproved indication [Unknown]
  - Expired product administered [Unknown]

NARRATIVE: CASE EVENT DATE: 20241201
